FAERS Safety Report 16663357 (Version 1)
Quarter: 2019Q3

REPORT INFORMATION
  Report Type: Spontaneous
  Country: NL (occurrence: NL)
  Receive Date: 20190802
  Receipt Date: 20190802
  Transmission Date: 20191004
  Serious: Yes (Hospitalization)
  Sender: FDA-Public Use
  Company Number: NL-PFIZER INC-2019325782

PATIENT
  Age: 65 Year
  Sex: Female

DRUGS (3)
  1. BEVACIZUMAB. [Suspect]
     Active Substance: BEVACIZUMAB
     Indication: NON-SMALL CELL LUNG CANCER
     Dosage: 15 MG/KG, EVERY 3 WEEKS,(ON 19/JUN/2019, SHE RECEIVED THE MOST RECENT DOSE OF BEVACIZUMAB (1014 MG)
     Route: 042
     Dates: start: 20190214
  2. PACLITAXEL. [Suspect]
     Active Substance: PACLITAXEL
     Indication: NON-SMALL CELL LUNG CANCER
     Dosage: 200 MG/M2, EVERY 3 WEEKS,(ON 18/APR/2019, SHE RECEIVED THE MOST RECENT DOSE OF PACLITAXEL (342 MG) P
     Route: 042
     Dates: start: 20190214
  3. CARBOPLATIN. [Suspect]
     Active Substance: CARBOPLATIN
     Indication: NON-SMALL CELL LUNG CANCER
     Dosage: 1 UNK, EVERY 3 WEEKS,(AUC 6ON 18/APR/2019, SHE RECEIVED THE MOST RECENT DOSE OF CARBOPLATIN (657 MG)
     Route: 042
     Dates: start: 20190214

REACTIONS (1)
  - Appendicitis perforated [Recovering/Resolving]

NARRATIVE: CASE EVENT DATE: 20190701
